FAERS Safety Report 5199542-3 (Version None)
Quarter: 2006Q4

REPORT INFORMATION
  Report Type: 
  Country: None (occurrence: None)
  Receive Date: 20061229
  Receipt Date: 20061214
  Transmission Date: 20070319
  Serious: Yes (Other)
  Sender: FDA-Public Use
  Company Number: 2006RR-04967

PATIENT
  Age: 11 Year
  Sex: Female
  Weight: 31.8 kg

DRUGS (2)
  1. IBUPROFEN [Suspect]
  2. PIROXICAM [Suspect]
     Indication: CHEST PAIN

REACTIONS (3)
  - CONTUSION [None]
  - EYE PAIN [None]
  - VISION BLURRED [None]
